FAERS Safety Report 25926660 (Version 1)
Quarter: 2025Q4

REPORT INFORMATION
  Report Type: Spontaneous
  Country: US (occurrence: US)
  Receive Date: 20251015
  Receipt Date: 20251015
  Transmission Date: 20260117
  Serious: No
  Sender: PFIZER
  Company Number: US-TAKEDA-2025TUS089353

PATIENT
  Age: 57 Year
  Sex: Male

DRUGS (1)
  1. PROTONIX [Suspect]
     Active Substance: PANTOPRAZOLE SODIUM
     Dosage: UNK
     Route: 065

REACTIONS (1)
  - Skin reaction [Unknown]
